FAERS Safety Report 26100246 (Version 1)
Quarter: 2025Q4

REPORT INFORMATION
  Report Type: Spontaneous
  Country: AU (occurrence: AU)
  Receive Date: 20251128
  Receipt Date: 20251128
  Transmission Date: 20260118
  Serious: Yes (Hospitalization, Other)
  Sender: BAXTER
  Company Number: AU-BAXTER-2025BAX024459

PATIENT
  Age: 41 Year
  Sex: Male

DRUGS (2)
  1. SODIUM CHLORIDE [Suspect]
     Active Substance: SODIUM CHLORIDE
     Dosage: UNK (WITH 5FU), TOTAL VOLUME 230 ML
     Route: 065
     Dates: start: 20251111, end: 20251114
  2. FLUOROURACIL [Suspect]
     Active Substance: FLUOROURACIL
     Indication: Chemotherapy
     Dosage: 3100 MG (FLUOROURACIL HS (ACCORD) WITH 0.9% SODIUM CHLORIDE), TOTAL VOLUME 230ML
     Route: 065
     Dates: start: 20251111, end: 20251114

REACTIONS (4)
  - Critical illness [Unknown]
  - Incorrect dose administered by device [Unknown]
  - Device infusion issue [Unknown]
  - Device use issue [Unknown]

NARRATIVE: CASE EVENT DATE: 20251114
